FAERS Safety Report 10385657 (Version 1)
Quarter: 2014Q3

REPORT INFORMATION
  Report Type: Spontaneous
  Country: TR (occurrence: None)
  Receive Date: 20140812
  Receipt Date: 20140812
  Transmission Date: 20150326
  Serious: Yes (Other)
  Sender: FDA-Public Use
  Company Number: VAL_03291_2014

PATIENT
  Sex: Male
  Weight: 3.8 kg

DRUGS (3)
  1. METOPROLOL [Suspect]
     Active Substance: METOPROLOL
     Indication: PRODUCT USED FOR UNKNOWN INDICATION
     Dosage: DF TRANSPLACENTAL
  2. ADENOSINE. [Suspect]
     Active Substance: ADENOSINE
     Indication: PRODUCT USED FOR UNKNOWN INDICATION
     Dosage: DF TRANSPLACENTAL
  3. AMIODARONE [Suspect]
     Active Substance: AMIODARONE
     Indication: PRODUCT USED FOR UNKNOWN INDICATION
     Dosage: DF TRANSPLACENTAL

REACTIONS (4)
  - Foetal distress syndrome [None]
  - Caesarean section [None]
  - Oligohydramnios [None]
  - Maternal drugs affecting foetus [None]
